FAERS Safety Report 9113383 (Version 2)
Quarter: 2013Q1

REPORT INFORMATION
  Report Type: Spontaneous
  Country: US (occurrence: US)
  Receive Date: 20130201
  Receipt Date: 20130312
  Transmission Date: 20140127
  Serious: No
  Sender: FDA-Public Use
  Company Number: US-009507513-1302USA000298

PATIENT
  Age: 75 Year
  Sex: Female
  Weight: 49.89 kg

DRUGS (5)
  1. CLARITIN REDITABS [Suspect]
     Indication: MYCOTIC ALLERGY
     Dosage: 10 MG, QD
     Route: 048
     Dates: start: 20130121, end: 20130129
  2. CLARITIN REDITABS [Suspect]
     Indication: MEDICAL OBSERVATION
  3. CLARITIN REDITABS [Suspect]
     Indication: PARANASAL SINUS HYPERSECRETION
  4. TESTOSTERONE [Concomitant]
     Indication: HOT FLUSH
     Dosage: UNK, UNKNOWN
  5. VIVELLE-DOT [Concomitant]
     Indication: HOT FLUSH
     Dosage: UNK, BIW

REACTIONS (1)
  - Drug effect decreased [Unknown]
